FAERS Safety Report 5901203-7 (Version None)
Quarter: 2008Q3

REPORT INFORMATION
  Report Type: 
  Country: None (occurrence: None)
  Receive Date: 20080929
  Receipt Date: 20080603
  Transmission Date: 20090109
  Serious: No
  Sender: FDA-Public Use
  Company Number: US-BRISTOL-MYERS SQUIBB COMPANY-14214787

PATIENT
  Age: 56 Year
  Sex: Female
  Weight: 68 kg

DRUGS (8)
  1. ORENCIA [Suspect]
     Indication: RHEUMATOID ARTHRITIS
     Dosage: BEGAN 2 YEARS AGO,CURRENT INFUSION 40MINUTES: 03-JUN-2008
     Route: 042
     Dates: start: 20060101
  2. CELEBREX [Concomitant]
  3. ARTHROTEC [Concomitant]
  4. COMBIPATCH [Concomitant]
  5. PREDNISONE [Concomitant]
  6. ADDERALL 10 [Concomitant]
  7. NEXIUM [Concomitant]
  8. VITAMINS [Concomitant]

REACTIONS (1)
  - INJECTION SITE EXTRAVASATION [None]
